FAERS Safety Report 11641070 (Version 1)
Quarter: 2015Q4

REPORT INFORMATION
  Report Type: Spontaneous
  Country: NL (occurrence: NL)
  Receive Date: 20151019
  Receipt Date: 20151019
  Transmission Date: 20160304
  Serious: Yes (Other)
  Sender: FDA-Public Use
  Company Number: NL-PFIZER INC-2015344205

PATIENT
  Sex: Male
  Weight: 3 kg

DRUGS (1)
  1. LYRICA [Suspect]
     Active Substance: PREGABALIN
     Indication: EPILEPSY
     Dosage: 75 MG, 2X/DAY
     Route: 064
     Dates: start: 2014

REACTIONS (2)
  - Hypoglycaemia neonatal [Recovering/Resolving]
  - Maternal exposure during pregnancy [Recovering/Resolving]

NARRATIVE: CASE EVENT DATE: 20150922
